FAERS Safety Report 6421328-X (Version None)
Quarter: 2009Q4

REPORT INFORMATION
  Report Type: 
  Country: None (occurrence: None)
  Receive Date: 20091030
  Receipt Date: 20091016
  Transmission Date: 20100525
  Serious: Yes (Other)
  Sender: FDA-Public Use
  Company Number: PHHY2009DE45621

PATIENT
  Sex: Male

DRUGS (1)
  1. RASILEZ [Suspect]
     Dosage: 150 MG, UNK
     Route: 048
     Dates: start: 20090916, end: 20091010

REACTIONS (2)
  - DEPRESSION [None]
  - TINNITUS [None]
